FAERS Safety Report 10334705 (Version 2)
Quarter: 2014Q3

REPORT INFORMATION
  Report Type: Spontaneous
  Country: US (occurrence: US)
  Receive Date: 20140723
  Receipt Date: 20140808
  Transmission Date: 20150326
  Serious: No
  Sender: FDA-Public Use
  Company Number: US-PFIZER INC-2014199973

PATIENT
  Sex: Female

DRUGS (1)
  1. NEUMEGA [Suspect]
     Active Substance: OPRELVEKIN
     Dosage: UNK

REACTIONS (1)
  - Platelet count decreased [Recovered/Resolved]
